FAERS Safety Report 7603094-5 (Version None)
Quarter: 2011Q3

REPORT INFORMATION
  Report Type: 
  Country: None (occurrence: None)
  Receive Date: 20110712
  Receipt Date: 20110704
  Transmission Date: 20111222
  Serious: Yes (Other)
  Sender: FDA-Public Use
  Company Number: ID-B.I. PHARMACEUTICALS,INC./RIDGEFIELD-2011-BP-17264YA

PATIENT
  Age: 60 Year
  Sex: Female

DRUGS (3)
  1. TAMSULOSIN HCL [Suspect]
     Indication: URETERIC CALCULUS REMOVAL
     Route: 048
     Dates: start: 20110623, end: 20110624
  2. CEFIXIME (UNSPECIFIED) (CEFIXIME) [Concomitant]
  3. ANALGESICS [Concomitant]

REACTIONS (1)
  - ABDOMINAL PAIN UPPER [None]
